FAERS Safety Report 23848090 (Version 4)
Quarter: 2024Q3

REPORT INFORMATION
  Report Type: Spontaneous
  Country: US (occurrence: US)
  Receive Date: 20240513
  Receipt Date: 20240730
  Transmission Date: 20241017
  Serious: No
  Sender: PFIZER
  Company Number: US-PFIZER INC-PV202400060668

PATIENT
  Age: 82 Year
  Sex: Female
  Weight: 53.061 kg

DRUGS (1)
  1. PREMARIN [Suspect]
     Active Substance: ESTROGENS, CONJUGATED
     Indication: Urinary tract infection
     Dosage: 0.5 G, 1X/DAY
     Dates: start: 20240403

REACTIONS (2)
  - Contraindicated product administered [Unknown]
  - Off label use [Unknown]
